FAERS Safety Report 9142952 (Version 2)
Quarter: 2013Q2

REPORT INFORMATION
  Report Type: Spontaneous
  Country: FR (occurrence: FR)
  Receive Date: 20130306
  Receipt Date: 20130427
  Transmission Date: 20140414
  Serious: Yes (Death, Hospitalization)
  Sender: FDA-Public Use
  Company Number: FR-PFIZER INC-2013076394

PATIENT
  Age: 84 Year
  Sex: Male

DRUGS (10)
  1. CORDARONE [Suspect]
     Indication: ATRIAL FIBRILLATION
     Dosage: UNK
     Route: 048
     Dates: end: 201212
  2. PREVISCAN [Concomitant]
     Dosage: UNK
  3. LASILIX [Concomitant]
     Dosage: UNK
  4. INEXIUM [Concomitant]
     Dosage: UNK
  5. KARDEGIC [Concomitant]
     Dosage: UNK
  6. RAMIPRIL [Concomitant]
     Dosage: UNK
  7. LERCAN [Concomitant]
     Dosage: UNK
  8. LIPANTHYL [Concomitant]
     Dosage: UNK
  9. DIAFUSOR [Concomitant]
     Dosage: UNK
  10. SIMVASTATIN [Concomitant]
     Dosage: UNK

REACTIONS (2)
  - Death [Fatal]
  - Lung disorder [Unknown]
